FAERS Safety Report 5504447-1 (Version None)
Quarter: 2007Q4

REPORT INFORMATION
  Report Type: 
  Country: None (occurrence: None)
  Receive Date: 20071101
  Receipt Date: 20071022
  Transmission Date: 20080405
  Serious: Yes (Other)
  Sender: FDA-Public Use
  Company Number: US-PFIZER INC-2007089015

PATIENT
  Sex: Female
  Weight: 65.8 kg

DRUGS (4)
  1. LIPITOR [Suspect]
     Indication: BLOOD CHOLESTEROL INCREASED
  2. ATENOLOL [Concomitant]
  3. INDAPAMIDE [Concomitant]
  4. MICRO-K [Concomitant]

REACTIONS (2)
  - ARTHRITIS [None]
  - HIP ARTHROPLASTY [None]
